FAERS Safety Report 16690503 (Version 6)
Quarter: 2020Q4

REPORT INFORMATION
  Report Type: Spontaneous
  Country: US (occurrence: US)
  Receive Date: 20190810
  Receipt Date: 20201021
  Transmission Date: 20210113
  Serious: No
  Sender: FDA-Public Use
  Company Number: PHEH2019US032703

PATIENT
  Sex: Male

DRUGS (2)
  1. TRAVATAN Z [Suspect]
     Active Substance: TRAVOPROST
     Indication: PRODUCT USED FOR UNKNOWN INDICATION
     Dosage: UNK UNK, QHS
     Route: 047
     Dates: start: 2001
  2. TRAVATAN Z [Suspect]
     Active Substance: TRAVOPROST
     Dosage: 0.004 %
     Route: 065

REACTIONS (6)
  - Intraocular pressure increased [Unknown]
  - Ocular hyperaemia [Unknown]
  - Eye discharge [Unknown]
  - Drug ineffective [Unknown]
  - Eye swelling [Unknown]
  - Eye pain [Unknown]
